FAERS Safety Report 6780402-9 (Version None)
Quarter: 2010Q2

REPORT INFORMATION
  Report Type: 
  Country: None (occurrence: None)
  Receive Date: 20100619
  Receipt Date: 20100616
  Transmission Date: 20101027
  Serious: Yes (Hospitalization)
  Sender: FDA-Public Use
  Company Number: US-RB-011661-10

PATIENT
  Age: 66 Year
  Sex: Female

DRUGS (1)
  1. SUBUTEX [Suspect]
     Indication: PAIN
     Dosage: TOOK 12- 16 MG DAILY
     Route: 060
     Dates: start: 20090301, end: 20100501

REACTIONS (1)
  - INTERVERTEBRAL DISC PROTRUSION [None]
